FAERS Safety Report 7548654-5 (Version None)
Quarter: 2011Q2

REPORT INFORMATION
  Report Type: 
  Country: None (occurrence: None)
  Receive Date: 20110615
  Receipt Date: 20110531
  Transmission Date: 20111010
  Serious: No
  Sender: FDA-Public Use
  Company Number: US-B.I. PHARMACEUTICALS,INC./RIDGEFIELD-2011-BP-06729BP

PATIENT
  Sex: Female

DRUGS (15)
  1. DIOVAN [Concomitant]
     Indication: HYPERTENSION
     Dosage: 80 MG
     Route: 048
  2. METOPROLOL [Concomitant]
     Indication: HYPERTENSION
     Dosage: 50 MG
     Route: 048
  3. CLONIDINE [Concomitant]
     Indication: HYPERTENSION
  4. DIOVAN [Concomitant]
     Indication: CARDIAC DISORDER
  5. GABAPENTIN [Concomitant]
     Indication: PAIN IN EXTREMITY
     Dosage: 300 MG
     Route: 048
     Dates: start: 20100101
  6. PRADAXA [Suspect]
     Dosage: 150 MG
     Route: 048
     Dates: start: 20110503
  7. PRADAXA [Suspect]
     Indication: ATRIAL FIBRILLATION
     Dosage: 150 MG
     Route: 048
     Dates: start: 20110218
  8. GABAPENTIN [Concomitant]
     Indication: NEURALGIA
  9. ASPIRIN [Concomitant]
     Indication: CEREBROVASCULAR ACCIDENT PROPHYLAXIS
     Dosage: 81 MG
     Route: 048
  10. ASPIRIN [Concomitant]
     Indication: ATRIAL FIBRILLATION
  11. SYNTHROID [Concomitant]
     Indication: HYPOTHYROIDISM
     Dosage: 75 MCG
     Route: 048
  12. DILTIAZEM [Concomitant]
     Indication: CARDIAC DISORDER
     Dosage: 360 MG
  13. DILTIAZEM [Concomitant]
     Indication: HYPERTENSION
  14. GABAPENTIN [Concomitant]
     Indication: HYPOAESTHESIA
  15. CLONIDINE [Concomitant]
     Indication: CARDIAC DISORDER
     Dosage: 0.6 MG
     Route: 048

REACTIONS (5)
  - THIRST [None]
  - FEELING DRUNK [None]
  - DYSURIA [None]
  - CONSTIPATION [None]
  - DRY MOUTH [None]
